FAERS Safety Report 5877963-0 (Version None)
Quarter: 2008Q3

REPORT INFORMATION
  Report Type: 
  Country: None (occurrence: None)
  Receive Date: 20080911
  Receipt Date: 20080909
  Transmission Date: 20090109
  Serious: Yes (Other)
  Sender: FDA-Public Use
  Company Number: D0058676A

PATIENT
  Age: 9 Year
  Sex: Male

DRUGS (2)
  1. VIANI [Suspect]
     Indication: ASTHMA
     Route: 055
     Dates: start: 20080701
  2. FLUTIDE [Concomitant]
     Indication: ASTHMA
     Route: 055

REACTIONS (2)
  - MENTAL DISORDER [None]
  - SUICIDAL IDEATION [None]
